FAERS Safety Report 7213316-0 (Version None)
Quarter: 2011Q1

REPORT INFORMATION
  Report Type: 
  Country: None (occurrence: None)
  Receive Date: 20110106
  Receipt Date: 20101222
  Transmission Date: 20110831
  Serious: Yes (Other)
  Sender: FDA-Public Use
  Company Number: CA-JNJFOC-20110101159

PATIENT

DRUGS (11)
  1. FLEXERIL [Suspect]
     Indication: DRUG EXPOSURE DURING PREGNANCY
     Route: 064
  2. OXYCONTIN [Suspect]
     Indication: DRUG EXPOSURE DURING PREGNANCY
     Route: 064
  3. LIDOCAINE HYDROCHLORIDE IN PLASTIC CONTAINER [Suspect]
     Indication: DRUG EXPOSURE DURING PREGNANCY
     Route: 064
  4. CLOMID [Suspect]
     Indication: DRUG EXPOSURE DURING PREGNANCY
     Route: 064
  5. CELEXA [Suspect]
  6. NALOXONE [Suspect]
     Indication: DRUG EXPOSURE DURING PREGNANCY
     Dosage: TOTAL DAILY DOSE OF 30 MG/15 MG
     Route: 064
  7. FLEXERIL [Suspect]
     Route: 064
  8. DICLECTIN [Suspect]
     Indication: DRUG EXPOSURE DURING PREGNANCY
     Route: 064
  9. CELEXA [Suspect]
     Indication: DRUG EXPOSURE DURING PREGNANCY
  10. TRAMADOL HYDROCHLORIDE/ACETAMINOPHEN [Suspect]
     Indication: DRUG EXPOSURE DURING PREGNANCY
     Route: 064
  11. IMOVANE [Suspect]
     Indication: DRUG EXPOSURE DURING PREGNANCY
     Route: 064

REACTIONS (1)
  - DRUG WITHDRAWAL SYNDROME NEONATAL [None]
